FAERS Safety Report 8798721 (Version 2)
Quarter: 2013Q1

REPORT INFORMATION
  Report Type: Spontaneous
  Country: US (occurrence: US)
  Receive Date: 20120920
  Receipt Date: 20130212
  Transmission Date: 20140127
  Serious: Yes (Death, Other)
  Sender: FDA-Public Use
  Company Number: US-ROCHE-1126905

PATIENT
  Sex: Female

DRUGS (3)
  1. AVASTIN [Suspect]
     Indication: LUNG NEOPLASM MALIGNANT
     Route: 042
     Dates: end: 20080716
  2. AVASTIN [Suspect]
     Indication: BRONCHIAL CARCINOMA
  3. GEMCITABINE [Concomitant]

REACTIONS (3)
  - Lung neoplasm malignant [Fatal]
  - Hepatic lesion [Recovered/Resolved]
  - Dyspnoea [Recovered/Resolved]
